FAERS Safety Report 5146069-0 (Version None)
Quarter: 2006Q4

REPORT INFORMATION
  Report Type: 
  Country: None (occurrence: None)
  Receive Date: 20061102
  Receipt Date: 20061025
  Transmission Date: 20070319
  Serious: Yes (Hospitalization)
  Sender: FDA-Public Use
  Company Number: DEWYE331625OCT06

PATIENT
  Sex: Female

DRUGS (2)
  1. VENLAFAXINE HCL [Suspect]
     Dosage: 75 MG
  2. BUPRENORPHINE HCL [Suspect]
     Dosage: 35 UG/H
     Dates: start: 20061023

REACTIONS (3)
  - COMA [None]
  - DEHYDRATION [None]
  - HYPONATRAEMIA [None]
